FAERS Safety Report 12281010 (Version 5)
Quarter: 2016Q3

REPORT INFORMATION
  Report Type: Spontaneous
  Country: US (occurrence: US)
  Receive Date: 20160419
  Receipt Date: 20160701
  Transmission Date: 20161109
  Serious: Yes (Other)
  Sender: FDA-Public Use
  Company Number: US-JNJFOC-20160414123

PATIENT
  Sex: Female

DRUGS (6)
  1. FOLIC ACID. [Concomitant]
     Active Substance: FOLIC ACID
     Route: 065
  2. SULFASALAZINE. [Suspect]
     Active Substance: SULFASALAZINE
     Indication: PRODUCT USED FOR UNKNOWN INDICATION
     Route: 065
  3. CARVEDILOL. [Concomitant]
     Active Substance: CARVEDILOL
     Route: 065
  4. HYDROCODONE [Concomitant]
     Active Substance: HYDROCODONE
     Route: 065
  5. HYDROXYCHLOROQUINE [Concomitant]
     Active Substance: HYDROXYCHLOROQUINE
     Route: 065
  6. XARELTO [Suspect]
     Active Substance: RIVAROXABAN
     Indication: PULMONARY THROMBOSIS
     Route: 048

REACTIONS (3)
  - Spinal cord compression [Unknown]
  - Vaginal haemorrhage [Recovered/Resolved]
  - Nephrolithiasis [Unknown]
